FAERS Safety Report 7825822-6 (Version None)
Quarter: 2011Q4

REPORT INFORMATION
  Report Type: 
  Country: None (occurrence: None)
  Receive Date: 20111019
  Receipt Date: 20111012
  Transmission Date: 20120403
  Serious: Yes (Other)
  Sender: FDA-Public Use
  Company Number: US-CELGENEUS-163-21880-11091239

PATIENT
  Sex: Female
  Weight: 66.284 kg

DRUGS (5)
  1. REVLIMID [Suspect]
     Indication: MULTIPLE MYELOMA
     Dosage: 20 MILLIGRAM
     Route: 048
     Dates: start: 20110801, end: 20110901
  2. STEROID [Concomitant]
     Route: 065
  3. OXYCONTIN [Concomitant]
     Indication: PAIN
     Route: 065
  4. MORPHINE [Concomitant]
     Route: 065
  5. HYDROCODONE BITARTRATE [Concomitant]
     Indication: PAIN
     Route: 065

REACTIONS (2)
  - DEMENTIA [None]
  - DISORIENTATION [None]
